FAERS Safety Report 12342228 (Version 2)
Quarter: 2016Q2

REPORT INFORMATION
  Report Type: Spontaneous
  Country: US (occurrence: US)
  Receive Date: 20160506
  Receipt Date: 20160608
  Transmission Date: 20160815
  Serious: Yes (Other)
  Sender: FDA-Public Use
  Company Number: US-BAYER-2016-082258

PATIENT
  Age: 50 Year
  Sex: Female

DRUGS (2)
  1. MIRENA [Suspect]
     Active Substance: LEVONORGESTREL
     Indication: CONTRACEPTION
     Dosage: 20 MCG/24HR, CONT
     Route: 015
     Dates: start: 2015
  2. MIRENA [Suspect]
     Active Substance: LEVONORGESTREL
     Indication: MENOPAUSE
     Dosage: 20 MCG/24HR, CONT
     Route: 015
     Dates: start: 20090730, end: 20140321

REACTIONS (5)
  - Abdominal pain lower [None]
  - Breast tenderness [None]
  - Intervertebral disc degeneration [Not Recovered/Not Resolved]
  - Decreased activity [Not Recovered/Not Resolved]
  - Adverse drug reaction [Not Recovered/Not Resolved]

NARRATIVE: CASE EVENT DATE: 2016
